FAERS Safety Report 4598138-1 (Version None)
Quarter: 2005Q1

REPORT INFORMATION
  Report Type: 
  Country: None (occurrence: None)
  Receive Date: 20050301
  Receipt Date: 20050301
  Transmission Date: 20050727
  Serious: Yes (Hospitalization)
  Sender: FDA-Public Use
  Company Number: None

PATIENT
  Age: 76 Year
  Sex: Male
  Weight: 68.9467 kg

DRUGS (9)
  1. ASPIRIN [Suspect]
     Indication: CORONARY ARTERY DISEASE
     Dosage: 81MG PO Q DAY
     Route: 048
  2. CLOPIDOGREL [Suspect]
     Indication: CORONARY ARTERY DISEASE
     Dosage: 75MG PO Q DAY
     Route: 048
     Dates: start: 19991001
  3. DOCUSATE SODIUM [Concomitant]
  4. FELODIPINE [Concomitant]
  5. LISINOPRIL [Concomitant]
  6. METOPROLOL [Concomitant]
  7. NITROGLYCERIN [Concomitant]
  8. OMEPRAZOLE [Concomitant]
  9. SIMVASTATIN [Concomitant]

REACTIONS (11)
  - ANAEMIA [None]
  - ANGINA PECTORIS [None]
  - ARTERIOVENOUS MALFORMATION [None]
  - CHEST DISCOMFORT [None]
  - CHEST PAIN [None]
  - HAEMORRHOIDS [None]
  - HYPERHIDROSIS [None]
  - INTESTINAL POLYP [None]
  - MEAN CELL VOLUME DECREASED [None]
  - OESOPHAGITIS [None]
  - UPPER GASTROINTESTINAL HAEMORRHAGE [None]
